FAERS Safety Report 18537984 (Version 1)
Quarter: 2020Q4

REPORT INFORMATION
  Report Type: Report from Study
  Country: US (occurrence: US)
  Receive Date: 20201123
  Receipt Date: 20201123
  Transmission Date: 20210114
  Serious: Yes (Hospitalization)
  Sender: FDA-Public Use
  Company Number: US-EXELIXIS-CABO-20029783

PATIENT
  Age: 61 Year
  Sex: Male

DRUGS (3)
  1. CABOMETYX [Suspect]
     Active Substance: CABOZANTINIB S-MALATE
     Dosage: 40 MG, QD
     Route: 048
  2. CABOMETYX [Suspect]
     Active Substance: CABOZANTINIB S-MALATE
     Indication: RENAL CELL CARCINOMA STAGE III
     Dosage: 60 MG, QD
     Route: 048
     Dates: start: 20200406
  3. CABOMETYX [Suspect]
     Active Substance: CABOZANTINIB S-MALATE
     Dosage: 40 MG, QD
     Route: 048
     Dates: start: 20200515

REACTIONS (12)
  - Peripheral swelling [Unknown]
  - Skin exfoliation [Recovering/Resolving]
  - Gait disturbance [Recovered/Resolved]
  - Malignant neoplasm progression [Unknown]
  - Myocardial infarction [Unknown]
  - Head injury [Unknown]
  - Product dose omission issue [Unknown]
  - Burning sensation [Recovering/Resolving]
  - Contusion [Unknown]
  - Back injury [Unknown]
  - Fall [Unknown]
  - Blood pressure increased [Recovered/Resolved]

NARRATIVE: CASE EVENT DATE: 20200511
